FAERS Safety Report 18490563 (Version 1)
Quarter: 2020Q4

REPORT INFORMATION
  Report Type: Spontaneous
  Country: FR (occurrence: FR)
  Receive Date: 20201111
  Receipt Date: 20201111
  Transmission Date: 20210114
  Serious: Yes (Hospitalization)
  Sender: FDA-Public Use
  Company Number: FR-UCBSA-2020044409

PATIENT
  Age: 11 Year
  Sex: Female
  Weight: 46 kg

DRUGS (1)
  1. KEPPRA [Suspect]
     Active Substance: LEVETIRACETAM
     Indication: EPILEPSY
     Dosage: 2000 MG A DAY
     Route: 048
     Dates: start: 20181101, end: 20201012

REACTIONS (3)
  - Aggression [Recovered/Resolved]
  - Suicide attempt [Recovered/Resolved]
  - Behaviour disorder [Recovered/Resolved]

NARRATIVE: CASE EVENT DATE: 202009
